FAERS Safety Report 19289308 (Version 1)
Quarter: 2021Q2

REPORT INFORMATION
  Report Type: Spontaneous
  Country: US (occurrence: US)
  Receive Date: 20210521
  Receipt Date: 20210521
  Transmission Date: 20210717
  Serious: No
  Sender: FDA-Public Use
  Company Number: US-PFIZER INC-2021471060

PATIENT

DRUGS (2)
  1. ENCORAFENIB [Suspect]
     Active Substance: ENCORAFENIB
     Dosage: UNK
  2. BINIMETINIB [Suspect]
     Active Substance: BINIMETINIB
     Dosage: UNK

REACTIONS (3)
  - Off label use [Unknown]
  - Neoplasm progression [Unknown]
  - Product use issue [Unknown]
